FAERS Safety Report 8399137-4 (Version None)
Quarter: 2012Q2

REPORT INFORMATION
  Report Type: 
  Country: None (occurrence: None)
  Receive Date: 20120531
  Receipt Date: 20120524
  Transmission Date: 20120825
  Serious: No
  Sender: FDA-Public Use
  Company Number: US-PFIZER INC-2012126972

PATIENT
  Sex: Female

DRUGS (3)
  1. LANTUS [Suspect]
     Indication: TYPE 2 DIABETES MELLITUS
     Dosage: 40 UNITS, UNK 1X/DAY
     Route: 058
  2. GLIPIZIDE [Suspect]
     Dosage: 20 MG,2X/DAY (IN THE MORNING AND EVENING)
  3. GLIPIZIDE [Suspect]
     Dosage: 10 MG, UNK

REACTIONS (3)
  - INJECTION SITE HAEMORRHAGE [None]
  - BLOOD GLUCOSE DECREASED [None]
  - BLOOD GLUCOSE INCREASED [None]
